FAERS Safety Report 10334332 (Version 3)
Quarter: 2014Q3

REPORT INFORMATION
  Report Type: Spontaneous
  Country: US (occurrence: None)
  Receive Date: 20140721
  Receipt Date: 20140806
  Transmission Date: 20150326
  Serious: Yes (Life-Threatening, Hospitalization, Other)
  Sender: FDA-Public Use
  Company Number: ADR-2014-01270

PATIENT
  Age: 56 Year
  Sex: Male

DRUGS (3)
  1. BACLOFEN INTRATHECAL [Suspect]
     Active Substance: BACLOFEN
     Indication: PAIN
  2. HYDROMORPHONE INTRATHECAL 8 MG/ML [Suspect]
     Active Substance: HYDROMORPHONE
  3. BUPIVACAINE 0.9 MG/ML [Suspect]
     Active Substance: BUPIVACAINE

REACTIONS (6)
  - Loss of consciousness [None]
  - Dysstasia [None]
  - Accidental overdose [None]
  - Movement disorder [None]
  - Pain [None]
  - Dyspnoea [None]
